FAERS Safety Report 4548035-2 (Version None)
Quarter: 2004Q4

REPORT INFORMATION
  Report Type: 
  Country: None (occurrence: None)
  Receive Date: 20041220
  Receipt Date: 20040307
  Transmission Date: 20050328
  Serious: Yes (Hospitalization, Other)
  Sender: FDA-Public Use
  Company Number: USA040567003

PATIENT
  Sex: Female

DRUGS (1)
  1. HUMULIN N [Suspect]

REACTIONS (1)
  - HYPERSENSITIVITY [None]
